FAERS Safety Report 7410598-7 (Version None)
Quarter: 2011Q2

REPORT INFORMATION
  Report Type: 
  Country: None (occurrence: None)
  Receive Date: 20110413
  Receipt Date: 20110405
  Transmission Date: 20111010
  Serious: No
  Sender: FDA-Public Use
  Company Number: US-BIOGENIDEC-2011BI012648

PATIENT
  Sex: Female

DRUGS (4)
  1. AVONEX [Suspect]
     Indication: MULTIPLE SCLEROSIS
     Route: 030
     Dates: start: 20080101
  2. CELEBREX [Concomitant]
     Indication: ARTHRITIS
     Dates: start: 19980101
  3. OXYCODONE HCL AND ACETAMINOPHEN [Concomitant]
     Indication: ARTHRITIS
  4. AVONEX [Suspect]
     Route: 030
     Dates: start: 20000601

REACTIONS (5)
  - TENDONITIS [None]
  - JOINT DISLOCATION [None]
  - MENISCUS LESION [None]
  - INSOMNIA [None]
  - FATIGUE [None]
